FAERS Safety Report 10872170 (Version 1)
Quarter: 2015Q1

REPORT INFORMATION
  Report Type: Spontaneous
  Country: US (occurrence: None)
  Receive Date: 20150223
  Receipt Date: 20150223
  Transmission Date: 20150721
  Serious: No
  Sender: FDA-Public Use
  Company Number: None

PATIENT
  Age: 78 Year
  Sex: Female

DRUGS (7)
  1. VITAMIN B12 [Concomitant]
     Active Substance: CYANOCOBALAMIN
  2. SOTOLOL [Concomitant]
     Active Substance: SOTALOL
  3. ELIQUIS [Concomitant]
     Active Substance: APIXABAN
  4. CONTRAVE [Suspect]
     Active Substance: BUPROPION HYDROCHLORIDE\NALTREXONE HYDROCHLORIDE
     Indication: WEIGHT CONTROL
     Dates: start: 20150206
  5. D3 [Concomitant]
     Active Substance: 25-HYDROXYCHOLECALCIFEROL, 5-TRANS-
  6. GABAPENTIN. [Concomitant]
     Active Substance: GABAPENTIN
  7. GLUCOSE [Concomitant]
     Active Substance: DEXTROSE

REACTIONS (4)
  - Cardiac disorder [None]
  - Tremor [None]
  - Rash erythematous [None]
  - Pain [None]

NARRATIVE: CASE EVENT DATE: 20150213
